FAERS Safety Report 6527174-0 (Version None)
Quarter: 2010Q1

REPORT INFORMATION
  Report Type: 
  Country: None (occurrence: None)
  Receive Date: 20100105
  Receipt Date: 20091225
  Transmission Date: 20100710
  Serious: Yes (Hospitalization, Other)
  Sender: FDA-Public Use
  Company Number: B0620813A

PATIENT

DRUGS (3)
  1. PAXIL [Suspect]
     Indication: DRUG USE FOR UNKNOWN INDICATION
     Dosage: 20MG PER DAY
     Dates: start: 20091207, end: 20091222
  2. DOGMATYL [Concomitant]
  3. AMOBAN [Concomitant]

REACTIONS (4)
  - DRUG EXPOSURE DURING PREGNANCY [None]
  - DYSKINESIA NEONATAL [None]
  - JOINT ANKYLOSIS [None]
  - NEONATAL RESPIRATORY ARREST [None]
